FAERS Safety Report 24792026 (Version 1)
Quarter: 2024Q4

REPORT INFORMATION
  Report Type: Spontaneous
  Country: IR (occurrence: IR)
  Receive Date: 20241231
  Receipt Date: 20241231
  Transmission Date: 20250115
  Serious: Yes (Hospitalization)
  Sender: IPCA
  Company Number: IR-IPCA LABORATORIES LIMITED-IPC-2024-IR-003078

PATIENT

DRUGS (1)
  1. TRAMADOL [Suspect]
     Active Substance: TRAMADOL
     Indication: Premature ejaculation
     Dosage: 3-4 PILLS
     Route: 065

REACTIONS (3)
  - Mania [Recovered/Resolved]
  - Off label use [Unknown]
  - Intentional product misuse [Unknown]
